FAERS Safety Report 5970762-0 (Version None)
Quarter: 2008Q4

REPORT INFORMATION
  Report Type: 
  Country: None (occurrence: None)
  Receive Date: 20081126
  Receipt Date: 20081111
  Transmission Date: 20090506
  Serious: No
  Sender: FDA-Public Use
  Company Number: US-ABBOTT-08P-163-0487344-00

PATIENT
  Sex: Male
  Weight: 119.4 kg

DRUGS (11)
  1. SIMCOR [Suspect]
     Indication: BLOOD CHOLESTEROL INCREASED
     Dosage: 500/20 MG
     Route: 048
     Dates: start: 20081022, end: 20081109
  2. LISINOPRIL [Concomitant]
     Indication: HYPERTENSION
  3. HYDROCHLOROTHIAZIDE [Concomitant]
     Indication: HYPERTENSION
  4. EXENATIDE [Concomitant]
     Indication: DIABETES MELLITUS
  5. FLUOXETINE [Concomitant]
     Indication: DEPRESSION
  6. INSULIN [Concomitant]
     Indication: DIABETES MELLITUS
  7. JENUVIA [Concomitant]
     Indication: DIABETES MELLITUS
  8. LEVOTHYROXINE SODIUM [Concomitant]
     Indication: HYPOTHYROIDISM
  9. METFORMIN HCL [Concomitant]
     Indication: DIABETES MELLITUS
  10. METOPROLOL TARTRATE [Concomitant]
     Indication: HYPERTENSION
  11. INSULIN LISPRO [Concomitant]
     Indication: DIABETES MELLITUS

REACTIONS (4)
  - ASTHENIA [None]
  - DIZZINESS [None]
  - FLUSHING [None]
  - LOSS OF CONSCIOUSNESS [None]
